FAERS Safety Report 26051293 (Version 1)
Quarter: 2025Q4

REPORT INFORMATION
  Report Type: Spontaneous
  Country: US (occurrence: US)
  Receive Date: 20251117
  Receipt Date: 20251117
  Transmission Date: 20260117
  Serious: Yes (Other)
  Sender: ABBVIE
  Company Number: US-ABBVIE-6548306

PATIENT

DRUGS (1)
  1. REFRESH LIQUIGEL [Suspect]
     Active Substance: CARBOXYMETHYLCELLULOSE SODIUM
     Indication: Dry eye
     Dosage: OPHTHALMIC
     Route: 065

REACTIONS (1)
  - Eye laser surgery [Unknown]

NARRATIVE: CASE EVENT DATE: 20251001
